FAERS Safety Report 22258271 (Version 3)
Quarter: 2023Q2

REPORT INFORMATION
  Report Type: Report from Study
  Country: US (occurrence: US)
  Receive Date: 20230427
  Receipt Date: 20230510
  Transmission Date: 20230721
  Serious: No
  Sender: FDA-Public Use
  Company Number: US-002147023-NVSC2023US096096

PATIENT
  Age: 65 Year
  Sex: Female

DRUGS (1)
  1. ENTRESTO [Suspect]
     Active Substance: SACUBITRIL\VALSARTAN
     Indication: Product used for unknown indication
     Dosage: UNK, BID
     Route: 047
     Dates: start: 202209

REACTIONS (4)
  - Initial insomnia [Unknown]
  - Blood potassium decreased [Unknown]
  - Product availability issue [Unknown]
  - Product use issue [Unknown]

NARRATIVE: CASE EVENT DATE: 20230301
